FAERS Safety Report 14189191 (Version 2)
Quarter: 2017Q4

REPORT INFORMATION
  Report Type: Report from Study
  Country: None (occurrence: CA)
  Receive Date: 20171115
  Receipt Date: 20171212
  Transmission Date: 20180321
  Serious: Yes (Hospitalization, Other)
  Sender: FDA-Public Use
  Company Number: CA-ABBVIE-17K-028-2157953-00

PATIENT
  Age: 66 Year
  Sex: Female

DRUGS (8)
  1. PANTOLOC [Concomitant]
     Active Substance: PANTOPRAZOLE SODIUM
     Indication: PRODUCT USED FOR UNKNOWN INDICATION
  2. HUMIRA [Suspect]
     Active Substance: ADALIMUMAB
     Dosage: RELOADING DOSE
     Route: 058
     Dates: start: 2017, end: 2017
  3. HUMIRA [Suspect]
     Active Substance: ADALIMUMAB
     Route: 058
     Dates: start: 2017
  4. VITAMIN E [Concomitant]
     Active Substance: .ALPHA.-TOCOPHEROL
     Indication: PRODUCT USED FOR UNKNOWN INDICATION
  5. PROLIA [Concomitant]
     Active Substance: DENOSUMAB
     Indication: PRODUCT USED FOR UNKNOWN INDICATION
  6. VITAMIN D [Concomitant]
     Active Substance: CHOLECALCIFEROL
     Indication: PRODUCT USED FOR UNKNOWN INDICATION
  7. HUMIRA [Suspect]
     Active Substance: ADALIMUMAB
     Indication: CROHN^S DISEASE
     Route: 058
     Dates: start: 20120703
  8. SYNTHROID [Concomitant]
     Active Substance: LEVOTHYROXINE SODIUM
     Indication: PRODUCT USED FOR UNKNOWN INDICATION

REACTIONS (27)
  - Vomiting [Recovering/Resolving]
  - Diarrhoea [Recovering/Resolving]
  - Drug level decreased [Unknown]
  - Dehydration [Unknown]
  - Large intestinal obstruction [Unknown]
  - Ileal stenosis [Unknown]
  - Product storage error [Unknown]
  - Anaemia [Unknown]
  - Procedural complication [Unknown]
  - Intestinal resection [Unknown]
  - Abdominal adhesions [Unknown]
  - Constipation [Unknown]
  - Enterovesical fistula [Unknown]
  - Osteopenia [Unknown]
  - Intussusception [Unknown]
  - Gastrointestinal pain [Unknown]
  - Intestinal fistula [Not Recovered/Not Resolved]
  - Diverticular perforation [Unknown]
  - Abdominal pain [Recovered/Resolved]
  - Large intestinal stenosis [Unknown]
  - Post procedural complication [Unknown]
  - Intestinal obstruction [Unknown]
  - Female genital tract fistula [Unknown]
  - Abdominal abscess [Recovering/Resolving]
  - Drug administration error [Unknown]
  - Diverticulitis [Unknown]
  - Crohn^s disease [Not Recovered/Not Resolved]

NARRATIVE: CASE EVENT DATE: 201303
